FAERS Safety Report 7352814-6 (Version None)
Quarter: 2011Q1

REPORT INFORMATION
  Report Type: 
  Country: None (occurrence: None)
  Receive Date: 20110315
  Receipt Date: 20110303
  Transmission Date: 20110831
  Serious: Yes (Other)
  Sender: FDA-Public Use
  Company Number: GB-ROCHE-753187

PATIENT
  Sex: Female
  Weight: 81 kg

DRUGS (8)
  1. MIRCERA [Suspect]
     Route: 042
     Dates: start: 20101013
  2. MIRCERA [Suspect]
     Route: 042
     Dates: start: 20100512, end: 20100713
  3. MIRCERA [Suspect]
     Route: 042
     Dates: start: 20100713, end: 20101013
  4. MIRCERA [Suspect]
     Route: 042
     Dates: start: 20081210, end: 20100512
  5. MIRCERA [Suspect]
     Route: 042
     Dates: start: 20080703, end: 20080910
  6. MIRCERA [Suspect]
     Route: 042
     Dates: start: 20081008, end: 20081210
  7. ARANESP [Concomitant]
     Dates: end: 20080709
  8. MIRCERA [Suspect]
     Route: 042
     Dates: start: 20080910, end: 20081008

REACTIONS (4)
  - LOWER RESPIRATORY TRACT INFECTION [None]
  - TREATMENT FAILURE [None]
  - ANAEMIA [None]
  - BREAST DISORDER [None]
